FAERS Safety Report 6029388-5 (Version None)
Quarter: 2009Q1

REPORT INFORMATION
  Report Type: 
  Country: None (occurrence: None)
  Receive Date: 20090105
  Receipt Date: 20081224
  Transmission Date: 20090719
  Serious: Yes (Hospitalization, Other)
  Sender: FDA-Public Use
  Company Number: 2008SP017555

PATIENT
  Age: 66 Year
  Sex: Female
  Weight: 49 kg

DRUGS (4)
  1. PEG-INTRON [Suspect]
     Indication: HEPATITIS C
     Dosage: 0.5 MCG/KG; QW; SC
     Route: 058
     Dates: start: 20070704, end: 20080827
  2. URSO 250 [Concomitant]
  3. BIOFERMIN [Concomitant]
  4. FAMOTIDINE D [Concomitant]

REACTIONS (3)
  - BRONCHOPNEUMONIA [None]
  - RENAL CELL CARCINOMA [None]
  - RENAL CYST [None]
